FAERS Safety Report 5754402-1 (Version None)
Quarter: 2008Q2

REPORT INFORMATION
  Report Type: 
  Country: None (occurrence: None)
  Receive Date: 20080530
  Receipt Date: 20080522
  Transmission Date: 20081010
  Serious: Yes (Congenital Anomaly)
  Sender: FDA-Public Use
  Company Number: GB-ABBOTT-08P-167-0441235-00

PATIENT
  Sex: Male

DRUGS (2)
  1. VALPROATE SODIUM [Suspect]
     Indication: DRUG EXPOSURE DURING PREGNANCY
     Route: 064
  2. VALPROATE CHRONO TABLETS [Suspect]
     Indication: DRUG EXPOSURE DURING PREGNANCY
     Route: 064

REACTIONS (24)
  - ABNORMAL BEHAVIOUR [None]
  - CLEFT PALATE [None]
  - CLINODACTYLY [None]
  - COGNITIVE DISORDER [None]
  - CONDUCTIVE DEAFNESS [None]
  - CONGENITAL NAIL DISORDER [None]
  - CONGENITAL NOSE MALFORMATION [None]
  - DEAFNESS [None]
  - DEVELOPMENTAL COORDINATION DISORDER [None]
  - DEVELOPMENTAL DELAY [None]
  - DRUG EXPOSURE DURING PREGNANCY [None]
  - DYSMORPHISM [None]
  - FACIAL PALSY [None]
  - FEEDING DISORDER NEONATAL [None]
  - FOETAL ANTICONVULSANT SYNDROME [None]
  - HYPERACUSIS [None]
  - HYPERMOBILITY SYNDROME [None]
  - HYPOPHONESIS [None]
  - HYPOTELORISM OF ORBIT [None]
  - MOTOR DYSFUNCTION [None]
  - OTITIS MEDIA [None]
  - PIERRE ROBIN SYNDROME [None]
  - SPEECH DISORDER [None]
  - SPEECH DISORDER DEVELOPMENTAL [None]
